FAERS Safety Report 5597733-0 (Version None)
Quarter: 2008Q1

REPORT INFORMATION
  Report Type: 
  Country: None (occurrence: None)
  Receive Date: 20080121
  Receipt Date: 20080116
  Transmission Date: 20080703
  Serious: Yes (Life-Threatening, Hospitalization)
  Sender: FDA-Public Use
  Company Number: ES-GILEAD-2008-0014998

PATIENT
  Age: 41 Year
  Sex: Male

DRUGS (6)
  1. TRUVADA [Suspect]
     Indication: HIV INFECTION
     Route: 048
     Dates: start: 20070711, end: 20070806
  2. EFAVIRENZ [Concomitant]
     Indication: HIV INFECTION
     Route: 048
     Dates: start: 20041105, end: 20070806
  3. COMBIVIR [Concomitant]
     Indication: HIV INFECTION
     Route: 048
     Dates: start: 20041105, end: 20070711
  4. TRANXILIUM [Concomitant]
     Indication: DEPRESSION
     Route: 048
  5. REXER [Concomitant]
     Indication: DEPRESSION
     Route: 048
  6. DIAZEPAM [Concomitant]
     Indication: DEPRESSION
     Route: 048

REACTIONS (1)
  - PANCYTOPENIA [None]
